FAERS Safety Report 18553856 (Version 2)
Quarter: 2022Q2

REPORT INFORMATION
  Report Type: Spontaneous
  Country: CH (occurrence: CH)
  Receive Date: 20201127
  Receipt Date: 20220505
  Transmission Date: 20220721
  Serious: Yes (Hospitalization, Other)
  Sender: FDA-Public Use
  Company Number: None

PATIENT
  Age: 67 Year
  Sex: Male

DRUGS (11)
  1. XANAX [Suspect]
     Active Substance: ALPRAZOLAM
     Dosage: 0.25 MG, 3X/DAY(IF NECESSARY)
     Dates: end: 20201009
  2. PREGABALIN [Suspect]
     Active Substance: PREGABALIN
     Dosage: 150 MG, 1X/DAY
     Route: 048
     Dates: start: 202008, end: 20201013
  3. ESCITALOPRAM [Suspect]
     Active Substance: ESCITALOPRAM OXALATE
     Dosage: 10 MG, 1X/DAY
     Route: 048
     Dates: start: 202009, end: 20201014
  4. ESCITALOPRAM [Suspect]
     Active Substance: ESCITALOPRAM OXALATE
     Dosage: 20 MG, 1X/DAY
     Route: 048
     Dates: start: 20201014, end: 20201022
  5. ESCITALOPRAM [Suspect]
     Active Substance: ESCITALOPRAM OXALATE
     Dosage: 15 MG, 1X/DAY
     Route: 048
     Dates: start: 20201022, end: 20201025
  6. ESCITALOPRAM [Suspect]
     Active Substance: ESCITALOPRAM OXALATE
     Dosage: 10 MG, 1X/DAY
     Route: 048
     Dates: start: 20201025, end: 20201028
  7. ESCITALOPRAM [Suspect]
     Active Substance: ESCITALOPRAM OXALATE
     Dosage: 5 MG, 1X/DAY
     Route: 048
     Dates: start: 20201028, end: 20201031
  8. HERBALS\HOPS\VALERIAN [Suspect]
     Active Substance: HERBALS\HOPS\VALERIAN
     Dosage: UNK
     Route: 048
     Dates: end: 20200930
  9. PANTOPRAZOLE SODIUM [Concomitant]
     Active Substance: PANTOPRAZOLE SODIUM
     Dosage: UNK
  10. DAFALGAN [Concomitant]
     Active Substance: ACETAMINOPHEN
     Dosage: UNK
  11. LIORESAL [Concomitant]
     Active Substance: BACLOFEN
     Dosage: UNK
     Dates: start: 202009

REACTIONS (2)
  - Cholestasis [Recovering/Resolving]
  - Haemangioma of liver [Unknown]

NARRATIVE: CASE EVENT DATE: 20201001
